FAERS Safety Report 4916621-3 (Version None)
Quarter: 2006Q1

REPORT INFORMATION
  Report Type: 
  Country: None (occurrence: None)
  Receive Date: 20060220
  Receipt Date: 20060216
  Transmission Date: 20060701
  Serious: Yes (Hospitalization)
  Sender: FDA-Public Use
  Company Number: FR-GLAXOSMITHKLINE-B0412471A

PATIENT
  Age: 58 Year
  Sex: Male

DRUGS (6)
  1. AMOXICILLIN TRIHYDRATE [Suspect]
     Dates: start: 20051221, end: 20060111
  2. NEXIUM [Suspect]
     Dosage: 40MG PER DAY
     Route: 048
     Dates: start: 20051214, end: 20060113
  3. STABLON [Suspect]
     Dosage: 37.5MG PER DAY
     Route: 048
     Dates: start: 20060106, end: 20060114
  4. CLONAZEPAM [Suspect]
     Dosage: 4MG PER DAY
     Route: 048
     Dates: start: 20051222
  5. LASILIX [Suspect]
     Dosage: 1G PER DAY
     Route: 048
     Dates: start: 20051213
  6. ZOLOFT [Suspect]
     Dosage: 50MG PER DAY
     Route: 048
     Dates: start: 20051231, end: 20060106

REACTIONS (4)
  - AGRANULOCYTOSIS [None]
  - GRANULOCYTES MATURATION ARREST [None]
  - NEUTROPHIL COUNT DECREASED [None]
  - WHITE BLOOD CELL COUNT DECREASED [None]
